FAERS Safety Report 17621980 (Version 1)
Quarter: 2020Q2

REPORT INFORMATION
  Report Type: Report from Study
  Country: US (occurrence: US)
  Receive Date: 20200403
  Receipt Date: 20200403
  Transmission Date: 20200713
  Serious: Yes (Hospitalization)
  Sender: FDA-Public Use
  Company Number: US-GLAXOSMITHKLINE-US2019TSO231828

PATIENT
  Age: 61 Year
  Sex: Female

DRUGS (2)
  1. NIRAPARIB [Suspect]
     Active Substance: NIRAPARIB
     Indication: OVARIAN CANCER
     Dosage: 200 MG, QD, AROUND 7PM WITH FOOD
     Route: 048
     Dates: start: 20191212
  2. NIRAPARIB [Suspect]
     Active Substance: NIRAPARIB
     Dosage: 300 MG, QD
     Route: 048
     Dates: start: 20191212

REACTIONS (19)
  - Fatigue [Not Recovered/Not Resolved]
  - Rash macular [Not Recovered/Not Resolved]
  - Platelet count decreased [Unknown]
  - Hypoaesthesia [Unknown]
  - Oropharyngeal pain [Unknown]
  - Blood test abnormal [Unknown]
  - Hospitalisation [Unknown]
  - Ear infection [Not Recovered/Not Resolved]
  - Nasal congestion [Unknown]
  - Paraesthesia [Unknown]
  - Anaemia [Unknown]
  - Nausea [Not Recovered/Not Resolved]
  - Asthenia [Not Recovered/Not Resolved]
  - Contusion [Not Recovered/Not Resolved]
  - Insomnia [Not Recovered/Not Resolved]
  - Palpitations [Unknown]
  - Cough [Unknown]
  - Ill-defined disorder [Unknown]
  - Malaise [Unknown]

NARRATIVE: CASE EVENT DATE: 201912
